FAERS Safety Report 8474299-9 (Version None)
Quarter: 2012Q2

REPORT INFORMATION
  Report Type: 
  Country: None (occurrence: None)
  Receive Date: 20120628
  Receipt Date: 20120619
  Transmission Date: 20120825
  Serious: Yes (Hospitalization)
  Sender: FDA-Public Use
  Company Number: US-BAYER-2012-062338

PATIENT
  Age: 37 Year
  Sex: Female
  Weight: 67 kg

DRUGS (3)
  1. IBUPROFEN (ADVIL) [Concomitant]
  2. YASMIN [Suspect]
  3. YAZ [Suspect]

REACTIONS (1)
  - DEEP VEIN THROMBOSIS [None]
